FAERS Safety Report 6107682-7 (Version None)
Quarter: 2009Q1

REPORT INFORMATION
  Report Type: 
  Country: None (occurrence: None)
  Receive Date: 20090309
  Receipt Date: 20090309
  Transmission Date: 20090719
  Serious: Yes (Other)
  Sender: FDA-Public Use
  Company Number: A0772014A

PATIENT
  Age: 82 Year
  Sex: Female

DRUGS (1)
  1. SOMINEX [Suspect]
     Indication: SLEEP DISORDER
     Route: 048

REACTIONS (3)
  - EYE PAIN [None]
  - GLAUCOMA [None]
  - VISION BLURRED [None]
